FAERS Safety Report 6131163-8 (Version None)
Quarter: 2009Q1

REPORT INFORMATION
  Report Type: 
  Country: None (occurrence: None)
  Receive Date: 20090325
  Receipt Date: 20090318
  Transmission Date: 20090719
  Serious: Yes (Hospitalization)
  Sender: FDA-Public Use
  Company Number: US-BAYER-200910437BCC

PATIENT
  Age: 48 Year
  Sex: Female

DRUGS (4)
  1. ALEVE [Suspect]
     Indication: PAIN IN EXTREMITY
     Dates: end: 20080901
  2. REBIF [Suspect]
     Indication: MULTIPLE SCLEROSIS
     Route: 058
     Dates: start: 20080716
  3. IBUPROFEN TABLETS [Suspect]
     Indication: PAIN IN EXTREMITY
     Dates: end: 20080901
  4. NAPROXEN [Suspect]
     Indication: PAIN IN EXTREMITY
     Dates: end: 20080901

REACTIONS (6)
  - GASTRIC HAEMORRHAGE [None]
  - GASTRIC ULCER HAEMORRHAGE [None]
  - HAEMATEMESIS [None]
  - NAUSEA [None]
  - PAIN IN EXTREMITY [None]
  - VOMITING [None]
